FAERS Safety Report 6072577-4 (Version None)
Quarter: 2009Q1

REPORT INFORMATION
  Report Type: 
  Country: None (occurrence: None)
  Receive Date: 20090210
  Receipt Date: 20090129
  Transmission Date: 20090719
  Serious: Yes (Hospitalization)
  Sender: FDA-Public Use
  Company Number: FR-SANOFI-SYNTHELABO-A02200900245

PATIENT
  Sex: Female

DRUGS (6)
  1. DAFALGAN [Concomitant]
     Indication: DRUG USE FOR UNKNOWN INDICATION
     Dosage: UNK
     Route: 065
     Dates: start: 20080101
  2. SEROPLEX [Concomitant]
     Indication: DRUG USE FOR UNKNOWN INDICATION
     Route: 048
     Dates: start: 20050101
  3. SERESTA [Concomitant]
     Indication: DRUG USE FOR UNKNOWN INDICATION
     Route: 048
     Dates: start: 20050101
  4. STILNOX [Suspect]
     Indication: INSOMNIA
     Dosage: 1 TABLET TAKEN AT 10 P.M. AND 1 TABLET AT 1 A.M.
     Route: 048
     Dates: start: 20081203, end: 20081204
  5. STILNOX [Suspect]
     Route: 048
     Dates: start: 20050101
  6. SEDATIF PC [Concomitant]
     Indication: DRUG USE FOR UNKNOWN INDICATION
     Route: 048
     Dates: start: 20080101, end: 20081204

REACTIONS (5)
  - ANTEROGRADE AMNESIA [None]
  - FALL [None]
  - INITIAL INSOMNIA [None]
  - PLEURAL EFFUSION [None]
  - RIB FRACTURE [None]
